FAERS Safety Report 18871341 (Version 2)
Quarter: 2021Q1

REPORT INFORMATION
  Report Type: Spontaneous
  Country: US (occurrence: US)
  Receive Date: 20210210
  Receipt Date: 20210305
  Transmission Date: 20210420
  Serious: No
  Sender: FDA-Public Use
  Company Number: US-SA-2021SA044239

PATIENT
  Age: 28 Year
  Sex: Male

DRUGS (1)
  1. DUPIXENT [Suspect]
     Active Substance: DUPILUMAB
     Indication: DERMATITIS ATOPIC
     Dosage: 300 MG, QOW
     Route: 058
     Dates: start: 20210116

REACTIONS (4)
  - Skin tightness [Unknown]
  - Vision blurred [Unknown]
  - Pruritus [Unknown]
  - Eyelid skin dryness [Unknown]

NARRATIVE: CASE EVENT DATE: 2021
